FAERS Safety Report 6833457-7 (Version None)
Quarter: 2010Q3

REPORT INFORMATION
  Report Type: 
  Country: None (occurrence: None)
  Receive Date: 20100712
  Receipt Date: 20070325
  Transmission Date: 20110219
  Serious: No
  Sender: FDA-Public Use
  Company Number: US-PFIZER INC-2007025271

PATIENT
  Sex: Female
  Weight: 58.97 kg

DRUGS (5)
  1. CHANTIX [Suspect]
     Dates: start: 20070318
  2. ACIPHEX [Concomitant]
     Indication: GASTROOESOPHAGEAL REFLUX DISEASE
  3. DYAZIDE [Concomitant]
  4. OMACOR [Concomitant]
     Indication: BLOOD CHOLESTEROL
  5. ACTONEL [Concomitant]
     Indication: OSTEOPOROSIS

REACTIONS (5)
  - ABDOMINAL PAIN [None]
  - FLATULENCE [None]
  - INSOMNIA [None]
  - NAUSEA [None]
  - VOMITING [None]
